FAERS Safety Report 5057404-6 (Version None)
Quarter: 2006Q3

REPORT INFORMATION
  Report Type: 
  Country: None (occurrence: None)
  Receive Date: 20060721
  Receipt Date: 20050921
  Transmission Date: 20061208
  Serious: No
  Sender: FDA-Public Use
  Company Number: US-GLAXOSMITHKLINE-A0575233A

PATIENT
  Age: 51 Year
  Sex: Female

DRUGS (9)
  1. AVANDIA [Suspect]
     Dosage: 4MG PER DAY
     Route: 048
     Dates: start: 20050801
  2. HUMALOG [Suspect]
     Dosage: 1INJ TWICE PER DAY
     Route: 065
  3. PROCARDIA XL [Concomitant]
  4. CLONIDINE [Concomitant]
  5. ATENOLOL [Concomitant]
  6. LOTENSIN [Concomitant]
  7. MAXZIDE [Concomitant]
  8. ASPIRIN [Concomitant]
  9. POTASSIUM [Concomitant]

REACTIONS (2)
  - GAIT DISTURBANCE [None]
  - VERTIGO [None]
